FAERS Safety Report 4719816-7 (Version None)
Quarter: 2005Q3

REPORT INFORMATION
  Report Type: 
  Country: None (occurrence: None)
  Receive Date: 20050721
  Receipt Date: 20041116
  Transmission Date: 20060218
  Serious: No
  Sender: FDA-Public Use
  Company Number: US-GLAXOSMITHKLINE-A0534144A

PATIENT
  Age: 85 Year
  Sex: Female

DRUGS (7)
  1. AVANDIA [Suspect]
     Route: 048
     Dates: start: 20040601
  2. COREG [Concomitant]
  3. DIGOXIN [Concomitant]
  4. LASIX [Concomitant]
  5. PREDNISONE [Concomitant]
  6. THEO-DUR [Concomitant]
  7. VERAPAMIL [Concomitant]

REACTIONS (2)
  - HYPERGLYCAEMIA [None]
  - OVERDOSE [None]
